FAERS Safety Report 8168465-X (Version None)
Quarter: 2012Q1

REPORT INFORMATION
  Report Type: 
  Country: None (occurrence: None)
  Receive Date: 20120227
  Receipt Date: 20120216
  Transmission Date: 20120608
  Serious: Yes (Hospitalization, Other)
  Sender: FDA-Public Use
  Company Number: US-BAYER-2011-063191

PATIENT
  Age: 20 Year
  Sex: Female
  Weight: 73 kg

DRUGS (2)
  1. YASMIN [Suspect]
     Dosage: UNK
     Dates: start: 20060101, end: 20080801
  2. DROSPIRENONE AND ETHINYL ESTRADIOL [Suspect]
     Dosage: UNK
     Dates: start: 20080801, end: 20091101

REACTIONS (12)
  - PAIN [None]
  - DYSPEPSIA [None]
  - DIARRHOEA [None]
  - BILIARY DYSKINESIA [None]
  - INJURY [None]
  - GALLBLADDER DISORDER [None]
  - NAUSEA [None]
  - CHOLECYSTITIS CHRONIC [None]
  - ABDOMINAL PAIN [None]
  - ABDOMINAL PAIN UPPER [None]
  - VOMITING [None]
  - FAT INTOLERANCE [None]
